FAERS Safety Report 13097785 (Version 1)
Quarter: 2017Q1

REPORT INFORMATION
  Report Type: Other
  Country: PT (occurrence: PT)
  Receive Date: 20170109
  Receipt Date: 20170109
  Transmission Date: 20170428
  Serious: Yes (Other)
  Sender: FDA-Public Use
  Company Number: PT-ASTELLAS-2017US000706

PATIENT
  Age: 71 Year
  Sex: Female

DRUGS (2)
  1. MEGESTROL ACETATE. [Concomitant]
     Active Substance: MEGESTROL ACETATE
     Indication: PRODUCT USED FOR UNKNOWN INDICATION
     Dosage: 1 DF, ONCE DAILY (DRUG REPORTED AS MEGESTROL GENERIS)
     Route: 065
     Dates: start: 20160922
  2. TARCEVA [Suspect]
     Active Substance: ERLOTINIB HYDROCHLORIDE
     Indication: LUNG ADENOCARCINOMA
     Route: 048
     Dates: start: 20160503, end: 201611

REACTIONS (6)
  - Pruritus [Unknown]
  - Rash pustular [Unknown]
  - Papule [Unknown]
  - Excoriation [Unknown]
  - Skin lesion [Unknown]
  - Eczema [Unknown]

NARRATIVE: CASE EVENT DATE: 20161118
